FAERS Safety Report 7076476-0 (Version None)
Quarter: 2010Q4

REPORT INFORMATION
  Report Type: 
  Country: None (occurrence: None)
  Receive Date: 20101029
  Receipt Date: 20101029
  Transmission Date: 20110411
  Serious: Yes (Life-Threatening, Hospitalization)
  Sender: FDA-Public Use
  Company Number: None

PATIENT
  Age: 17 Year
  Sex: Female
  Weight: 65 kg

DRUGS (1)
  1. PRIVIGEN [Suspect]
     Indication: HEART TRANSPLANT REJECTION
     Dosage: 130GM ONCE IV DRIP
     Route: 041
     Dates: start: 20101022, end: 20101023

REACTIONS (1)
  - HAEMOLYTIC ANAEMIA [None]
